FAERS Safety Report 12980821 (Version 2)
Quarter: 2016Q4

REPORT INFORMATION
  Report Type: Spontaneous
  Country: US (occurrence: US)
  Receive Date: 20161128
  Receipt Date: 20161212
  Transmission Date: 20170207
  Serious: Yes (Death, Hospitalization, Other)
  Sender: FDA-Public Use
  Company Number: US-BAUSCH-BL-2016-028547

PATIENT
  Age: 66 Year
  Sex: Male
  Weight: 92.62 kg

DRUGS (1)
  1. XIFAXAN [Suspect]
     Active Substance: RIFAXIMIN
     Indication: HEPATIC CIRRHOSIS
     Route: 065
     Dates: start: 20160830

REACTIONS (9)
  - Hepatic cirrhosis [Fatal]
  - Urinary incontinence [Unknown]
  - Acute kidney injury [Unknown]
  - Respiratory failure [Unknown]
  - Agitation [Unknown]
  - Fall [Unknown]
  - Brain injury [Unknown]
  - Rehabilitation therapy [Unknown]
  - Ammonia abnormal [Unknown]

NARRATIVE: CASE EVENT DATE: 20160111
